FAERS Safety Report 6290828-8 (Version None)
Quarter: 2009Q3

REPORT INFORMATION
  Report Type: 
  Country: None (occurrence: None)
  Receive Date: 20090730
  Receipt Date: 20090721
  Transmission Date: 20100115
  Serious: Yes (Hospitalization)
  Sender: FDA-Public Use
  Company Number: ES-WYE-H10345209

PATIENT
  Age: 79 Year
  Sex: Female

DRUGS (14)
  1. AMIODARONE HCL [Suspect]
     Indication: ATRIAL FIBRILLATION
     Route: 048
     Dates: start: 20090101, end: 20090420
  2. ASCORBIC ACID [Suspect]
     Route: 048
     Dates: start: 20090101, end: 20090420
  3. FUROSEMIDE [Concomitant]
     Indication: CARDIAC FAILURE
     Route: 048
     Dates: start: 20090101
  4. OMEPRAZOLE [Concomitant]
     Dosage: NOT PROVIDED
     Dates: start: 20090101
  5. ADIRO [Concomitant]
     Route: 048
     Dates: start: 20090101
  6. POTASSIUM BICARBONATE [Suspect]
     Route: 048
     Dates: start: 20090101, end: 20090420
  7. METFORMIN HCL [Concomitant]
     Indication: TYPE 2 DIABETES MELLITUS
     Dosage: 0.43
     Route: 048
     Dates: start: 20090101
  8. INSULATARD [Concomitant]
     Indication: TYPE 2 DIABETES MELLITUS
     Dates: start: 20090101
  9. ATORVASTATIN [Concomitant]
     Indication: DYSLIPIDAEMIA
     Route: 048
     Dates: start: 20090101
  10. SINTROM [Concomitant]
     Indication: CARDIAC VALVE PROSTHESIS USER
     Dosage: NOT PROVIDED
     Dates: start: 20090101
  11. STILNOX [Concomitant]
     Route: 048
     Dates: start: 20090101
  12. TARDYFERON [Concomitant]
     Route: 048
     Dates: start: 20090101
  13. ALDACTONE [Suspect]
     Indication: HYPERTENSION
     Route: 048
     Dates: start: 20090101, end: 20090420
  14. COROPRES [Concomitant]
     Indication: HYPERTENSION
     Dates: start: 20090101

REACTIONS (3)
  - ATRIOVENTRICULAR BLOCK [None]
  - HYPERKALAEMIA [None]
  - RENAL FAILURE ACUTE [None]
